FAERS Safety Report 6878256-5 (Version None)
Quarter: 2010Q3

REPORT INFORMATION
  Report Type: 
  Country: None (occurrence: None)
  Receive Date: 20100728
  Receipt Date: 20100716
  Transmission Date: 20110219
  Serious: Yes (Other)
  Sender: FDA-Public Use
  Company Number: US-PFIZER INC-2010092417

PATIENT
  Sex: Female
  Weight: 90.703 kg

DRUGS (11)
  1. LIPITOR [Suspect]
     Indication: BLOOD CHOLESTEROL INCREASED
     Dosage: 10 MG, UNK
     Route: 048
     Dates: start: 20070101
  2. ABILIFY [Concomitant]
     Indication: BIPOLAR DISORDER
     Dosage: 2.5 MG, 1X/DAY
     Route: 048
  3. CYMBALTA [Concomitant]
     Indication: BIPOLAR DISORDER
     Dosage: 60 MG, 1X/DAY
     Route: 048
  4. LANSOPRAZOLE [Concomitant]
     Indication: GASTROOESOPHAGEAL REFLUX DISEASE
     Dosage: 30 MG, 1X/DAY
     Route: 048
  5. ACETYLSALICYLIC ACID [Concomitant]
     Indication: CARDIAC DISORDER
     Dosage: 81 MG, 1X/DAY
     Route: 048
  6. TOPROL-XL [Concomitant]
     Indication: HYPERTENSION
     Dosage: 12.5 MG, 1X/DAY
     Route: 048
  7. FLAXSEED OIL [Concomitant]
     Indication: HYPERTENSION
     Dosage: 1000 MG, 3X/DAY
  8. ASACOL [Concomitant]
     Indication: GASTROINTESTINAL INFECTION
     Dosage: 400 MG, 3X/DAY
     Route: 048
  9. CANASA [Concomitant]
     Indication: GASTROINTESTINAL INFECTION
     Dosage: 1000 MG, 2X/WEEK
     Route: 054
  10. HYDROCHLOROTHIAZIDE [Concomitant]
     Indication: HYPERTENSION
     Dosage: 25 MG, 3X/WEEK
  11. CENTRUM SILVER [Concomitant]
     Dosage: UNK
     Route: 048

REACTIONS (3)
  - MYALGIA [None]
  - MYOPATHY [None]
  - VITAMIN D DECREASED [None]
